FAERS Safety Report 10580923 (Version 2)
Quarter: 2014Q4

REPORT INFORMATION
  Report Type: Report from Study
  Country: BR (occurrence: BR)
  Receive Date: 20141113
  Receipt Date: 20141113
  Transmission Date: 20150529
  Serious: Yes (Death, Other)
  Sender: FDA-Public Use
  Company Number: BR-AMGEN-BRACT2011068847

PATIENT
  Age: 72 Year
  Sex: Female
  Weight: 80 kg

DRUGS (5)
  1. ETANERCEPT [Suspect]
     Active Substance: ETANERCEPT
     Indication: RHEUMATOID ARTHRITIS
     Dosage: 25 MG, 2X/WEEK
     Route: 058
     Dates: start: 20100108
  2. DIAZEPAM. [Concomitant]
     Active Substance: DIAZEPAM
     Dosage: UNK
  3. CHLOROTHIAZIDE. [Concomitant]
     Active Substance: CHLOROTHIAZIDE
     Dosage: UNK
  4. PROZEN                             /00724402/ [Concomitant]
     Dosage: UNK
  5. CAPTOPRIL. [Concomitant]
     Active Substance: CAPTOPRIL
     Dosage: UNK

REACTIONS (4)
  - Arthralgia [Unknown]
  - Dyspnoea [Unknown]
  - Death [Fatal]
  - Exostosis [Unknown]

NARRATIVE: CASE EVENT DATE: 201112
